FAERS Safety Report 16118305 (Version 2)
Quarter: 2019Q4

REPORT INFORMATION
  Report Type: Spontaneous
  Country: US (occurrence: US)
  Receive Date: 20190326
  Receipt Date: 20191002
  Transmission Date: 20200122
  Serious: Yes (Other)
  Sender: FDA-Public Use
  Company Number: US-ANIPHARMA-2019-US-004916

PATIENT
  Age: 80 Year
  Sex: Female
  Weight: 55.34 kg

DRUGS (1)
  1. ARIMIDEX [Suspect]
     Active Substance: ANASTROZOLE
     Indication: BREAST CANCER METASTATIC
     Dosage: 1 MG BY MOUTH DAILY
     Route: 048
     Dates: start: 2008, end: 201901

REACTIONS (4)
  - Hepatic cancer [Unknown]
  - Disease progression [Unknown]
  - Colon neoplasm [Unknown]
  - Drug ineffective [Unknown]

NARRATIVE: CASE EVENT DATE: 201811
